FAERS Safety Report 21488313 (Version 2)
Quarter: 2023Q1

REPORT INFORMATION
  Report Type: Report from Study
  Country: US (occurrence: US)
  Receive Date: 20221020
  Receipt Date: 20230118
  Transmission Date: 20230418
  Serious: Yes (Other)
  Sender: FDA-Public Use
  Company Number: US-ABBVIE-4168168

PATIENT
  Age: 58 Year
  Sex: Female
  Weight: 68.038 kg

DRUGS (5)
  1. SKYRIZI [Suspect]
     Active Substance: RISANKIZUMAB-RZAA
     Indication: Psoriasis
     Route: 058
     Dates: start: 20210421
  2. SKYRIZI [Suspect]
     Active Substance: RISANKIZUMAB-RZAA
     Route: 058
     Dates: start: 20220421
  3. IBUPROFEN [Concomitant]
     Active Substance: IBUPROFEN
     Indication: Analgesic therapy
     Dosage: PILL
     Route: 048
     Dates: start: 202208
  4. LEVOTHYROXINE [Concomitant]
     Active Substance: LEVOTHYROXINE
     Indication: Hypothyroidism
     Dosage: PILL
     Route: 048
  5. ENSTILAR [Concomitant]
     Active Substance: BETAMETHASONE DIPROPIONATE\CALCIPOTRIENE HYDRATE
     Indication: Psoriasis
     Dosage: 0.005/0.064
     Route: 061
     Dates: start: 20220215

REACTIONS (4)
  - Ankle fracture [Recovering/Resolving]
  - Spinal fracture [Recovering/Resolving]
  - Spinal fracture [Unknown]
  - Ankle operation [Recovering/Resolving]

NARRATIVE: CASE EVENT DATE: 20220828
